FAERS Safety Report 25276473 (Version 2)
Quarter: 2025Q3

REPORT INFORMATION
  Report Type: Spontaneous
  Country: EU (occurrence: EU)
  Receive Date: 20250507
  Receipt Date: 20250720
  Transmission Date: 20251021
  Serious: Yes (Hospitalization)
  Sender: ALEXION PHARMACEUTICALS
  Company Number: None

PATIENT
  Age: 73 Year
  Sex: Female
  Weight: 67.4 kg

DRUGS (2)
  1. FASENRA [Suspect]
     Active Substance: BENRALIZUMAB
     Indication: Hypereosinophilic syndrome
     Dosage: 30 MG EVERY 4 WEEKS
     Dates: start: 202410
  2. FASENRA [Suspect]
     Active Substance: BENRALIZUMAB

REACTIONS (5)
  - Condition aggravated [Recovering/Resolving]
  - Abdominal pain [Recovering/Resolving]
  - Diarrhoea [Recovering/Resolving]
  - Urticaria [Recovering/Resolving]
  - Urticaria [Recovering/Resolving]

NARRATIVE: CASE EVENT DATE: 20250301
